FAERS Safety Report 8296104-6 (Version None)
Quarter: 2012Q2

REPORT INFORMATION
  Report Type: 
  Country: None (occurrence: None)
  Receive Date: 20120418
  Receipt Date: 20120412
  Transmission Date: 20120825
  Serious: Yes (Other)
  Sender: FDA-Public Use
  Company Number: US-GLAXOSMITHKLINE-A0973395A

PATIENT
  Age: 50 Year
  Sex: Female

DRUGS (11)
  1. OMEPRAZOLE [Concomitant]
  2. ST. JOHNS WORT [Concomitant]
  3. LISINOPRIL [Concomitant]
  4. VITAMIN TAB [Concomitant]
  5. IRON [Concomitant]
  6. UNSPECIFIED MEDICATION [Concomitant]
  7. TREXIMET [Suspect]
     Indication: MIGRAINE
     Dosage: 1TAB AS REQUIRED
     Route: 048
     Dates: start: 20090401, end: 20120411
  8. CRANBERRY FRUIT [Concomitant]
  9. MULTI-VITAMINS [Concomitant]
  10. VITAMIN B-12 [Concomitant]
  11. BUTALBITAL [Concomitant]

REACTIONS (4)
  - NEPHROLITHIASIS [None]
  - KIDNEY INFECTION [None]
  - HYPERTENSION [None]
  - PYREXIA [None]
